FAERS Safety Report 23450823 (Version 1)
Quarter: 2024Q1

REPORT INFORMATION
  Report Type: Spontaneous
  Country: FR (occurrence: FR)
  Receive Date: 20240129
  Receipt Date: 20240129
  Transmission Date: 20240410
  Serious: Yes (Life-Threatening, Hospitalization)
  Sender: FDA-Public Use
  Company Number: FR-MACLEODS PHARMACEUTICALS US LTD-MAC2024045525

PATIENT

DRUGS (2)
  1. METFORMIN [Suspect]
     Active Substance: METFORMIN HYDROCHLORIDE
     Indication: Product used for unknown indication
     Dosage: 1.6 GRAM, QD
     Route: 065
  2. GENTAMICIN [Concomitant]
     Active Substance: GENTAMICIN
     Indication: Urinary tract infection
     Dosage: 240 MILLIGRAM, QD
     Route: 065

REACTIONS (3)
  - Coma [Recovered/Resolved]
  - Lactic acidosis [Recovered/Resolved]
  - Gastrointestinal disorder [Recovered/Resolved]
